FAERS Safety Report 11376825 (Version 1)
Quarter: 2015Q3

REPORT INFORMATION
  Report Type: Report from Study
  Country: US (occurrence: US)
  Receive Date: 20150813
  Receipt Date: 20150813
  Transmission Date: 20151125
  Serious: Yes (Other)
  Sender: FDA-Public Use
  Company Number: US-BAYER-2015-389164

PATIENT
  Age: 74 Year
  Sex: Female

DRUGS (3)
  1. STIVARGA [Suspect]
     Active Substance: REGORAFENIB
     Indication: COLON CANCER
     Dosage: 160 MG, QD
     Route: 048
     Dates: start: 20150722
  2. STIVARGA [Suspect]
     Active Substance: REGORAFENIB
     Indication: COLON CANCER
     Dosage: 80 MG, QD
     Route: 048
  3. STIVARGA [Suspect]
     Active Substance: REGORAFENIB
     Indication: COLON CANCER
     Dosage: 160 MG, QD
     Route: 048

REACTIONS (16)
  - Hypertension [Recovered/Resolved]
  - Vision blurred [None]
  - Oral mucosal erythema [None]
  - Heart rate increased [Not Recovered/Not Resolved]
  - Oral discomfort [None]
  - Fatigue [None]
  - Headache [None]
  - Asthenia [None]
  - Weight decreased [None]
  - Blood pressure fluctuation [None]
  - Oral pain [None]
  - Diarrhoea [None]
  - Dizziness [Not Recovered/Not Resolved]
  - Nausea [None]
  - Blood pressure diastolic increased [None]
  - Decreased appetite [None]

NARRATIVE: CASE EVENT DATE: 20150727
